FAERS Safety Report 6890160 (Version 5)
Quarter: 2014Q4

REPORT INFORMATION
  Report Type: Spontaneous
  Country: US (occurrence: US)
  Receive Date: 20090123
  Receipt Date: 20141005
  Transmission Date: 20150529
  Serious: No
  Sender: FDA-Public Use
  Company Number: US-ASTRAZENECA-2009UW01369

PATIENT
  Age: 56 Year
  Sex: Female

DRUGS (3)
  1. NEXIUM [Suspect]
     Active Substance: ESOMEPRAZOLE MAGNESIUM
     Route: 048
     Dates: start: 20040101, end: 20090107
  2. PRILOSEC [Suspect]
     Active Substance: OMEPRAZOLE MAGNESIUM
     Route: 048
  3. PRILOSEC OTC [Suspect]
     Active Substance: OMEPRAZOLE MAGNESIUM
     Route: 048

REACTIONS (14)
  - Respiratory tract congestion [Not Recovered/Not Resolved]
  - Vomiting [Unknown]
  - Abdominal pain upper [Unknown]
  - Drug ineffective [Unknown]
  - Cough [Not Recovered/Not Resolved]
  - Drug dose omission [Unknown]
  - Circumstance or information capable of leading to medication error [Unknown]
  - Fall [Unknown]
  - Feeding disorder [Unknown]
  - Adverse event [Unknown]
  - Foot fracture [Unknown]
  - Weight decreased [Unknown]
  - Malaise [Unknown]
  - Abdominal discomfort [Unknown]

NARRATIVE: CASE EVENT DATE: 20090107
